FAERS Safety Report 25902111 (Version 1)
Quarter: 2025Q4

REPORT INFORMATION
  Report Type: Report from Study
  Country: CO (occurrence: CO)
  Receive Date: 20251009
  Receipt Date: 20251009
  Transmission Date: 20260118
  Serious: Yes (Hospitalization)
  Sender: ASTELLAS
  Company Number: CO-ASTELLAS-2025-AER-018395

PATIENT
  Age: 70 Year
  Sex: Female
  Weight: 69 kg

DRUGS (2)
  1. PROGRAF [Suspect]
     Active Substance: TACROLIMUS
     Indication: Renal transplant
     Dosage: DOSE INFO: 2 MILLIGRAMS (1 MG X 2 CAPSULES) EVERY 12 HOURS VIA ORAL ROUTE.
     Route: 048
     Dates: start: 20200803
  2. PROGRAF [Suspect]
     Active Substance: TACROLIMUS
     Indication: Renal transplant
     Dosage: DOSE INFO: PROGRAF XL 1 MG (THREE CAPSULES), DOSE 3 MG EVERY 24 HOURS
     Route: 048

REACTIONS (4)
  - Urinary tract infection bacterial [Unknown]
  - Kidney infection [Unknown]
  - Secondary immunodeficiency [Recovered/Resolved]
  - Urinary tract infection [Recovered/Resolved]

NARRATIVE: CASE EVENT DATE: 20250301
